FAERS Safety Report 5989586-3 (Version None)
Quarter: 2008Q4

REPORT INFORMATION
  Report Type: 
  Country: None (occurrence: None)
  Receive Date: 20081204
  Receipt Date: 20081121
  Transmission Date: 20090506
  Serious: Yes (Death, Life-Threatening, Hospitalization)
  Sender: FDA-Public Use
  Company Number: 000685

PATIENT
  Age: 64 Year
  Sex: Male

DRUGS (10)
  1. BUSULFEX [Suspect]
     Indication: STEM CELL TRANSPLANT
     Dosage: 2.4 ML 0.8 ML, QID, INTRAVENOUS
     Route: 042
     Dates: start: 20071031, end: 20071031
  2. BUSULFEX [Suspect]
     Indication: STEM CELL TRANSPLANT
     Dosage: 2.4 ML 0.8 ML, QID, INTRAVENOUS
     Route: 042
     Dates: start: 20071101, end: 20071101
  3. BUSULFEX [Suspect]
     Indication: STEM CELL TRANSPLANT
     Dosage: 2.4 ML 0.8 ML, QID, INTRAVENOUS
     Route: 042
     Dates: start: 20071102, end: 20071102
  4. MYCOPHENOLATE MOFETIL [Suspect]
  5. TACROLIMUS [Suspect]
  6. FLUDARABINE PHOSPHATE [Concomitant]
  7. LORAZEPAM [Concomitant]
  8. CYTARABINE [Concomitant]
  9. MELPHALAN (MELPHALAN) [Concomitant]
  10. NEUPOGEN [Concomitant]

REACTIONS (24)
  - ANOREXIA [None]
  - BLOOD CULTURE POSITIVE [None]
  - BLOOD PRESSURE DECREASED [None]
  - CELLULITIS [None]
  - DIARRHOEA [None]
  - HAEMODIALYSIS [None]
  - HEPATIC FUNCTION ABNORMAL [None]
  - LOBAR PNEUMONIA [None]
  - MALAISE [None]
  - MULTI-ORGAN FAILURE [None]
  - NAUSEA [None]
  - NEOPLASM PROGRESSION [None]
  - OEDEMA PERIPHERAL [None]
  - PNEUMONIA BACTERIAL [None]
  - PYREXIA [None]
  - RENAL FAILURE ACUTE [None]
  - RESPIRATORY DISORDER [None]
  - STENOTROPHOMONAS INFECTION [None]
  - STENOTROPHOMONAS SEPSIS [None]
  - STOMATITIS [None]
  - VENOOCCLUSIVE LIVER DISEASE [None]
  - VIRAEMIA [None]
  - VOMITING [None]
  - WHITE BLOOD CELL COUNT INCREASED [None]
